FAERS Safety Report 22646649 (Version 1)
Quarter: 2023Q2

REPORT INFORMATION
  Report Type: Spontaneous
  Country: JP (occurrence: JP)
  Receive Date: 20230627
  Receipt Date: 20230627
  Transmission Date: 20230722
  Serious: Yes (Hospitalization, Other)
  Sender: FDA-Public Use
  Company Number: JP-TAIHO-2023-003883

PATIENT
  Age: 8 Decade
  Sex: Male

DRUGS (5)
  1. ABRAXANE [Suspect]
     Active Substance: PACLITAXEL
     Indication: Pancreatic carcinoma metastatic
     Dosage: DOSE NOT REPORTED/DAY; 100% DOSE; ON DAYS 1, 8, AND 15
     Route: 041
  2. ABRAXANE [Suspect]
     Active Substance: PACLITAXEL
     Dosage: DOSE NOT REPORTED/DAY; AT A DOSE REDUCED BY 1 LEVEL; ON DAYS 1, 8, AND 15
     Route: 041
     Dates: start: 20230621
  3. GEMCITABINE HYDROCHLORIDE [Concomitant]
     Active Substance: GEMCITABINE HYDROCHLORIDE
     Indication: Pancreatic carcinoma metastatic
     Dosage: DOSE NOT REPORTED/DAY; 100% DOSE; ON DAYS 1, 8, AND 15
  4. GEMCITABINE HYDROCHLORIDE [Concomitant]
     Active Substance: GEMCITABINE HYDROCHLORIDE
     Dosage: DOSE NOT REPORTED/DAY; AT A DOSE REDUCED BY 1 LEVEL; ON DAYS 1, 8, AND 15
     Dates: start: 20230621
  5. INSULIN NOS [Concomitant]
     Active Substance: INSULIN NOS
     Indication: Product used for unknown indication
     Dosage: NI

REACTIONS (1)
  - Cardiac failure [Recovering/Resolving]
